FAERS Safety Report 6203699-2 (Version None)
Quarter: 2009Q2

REPORT INFORMATION
  Report Type: 
  Country: None (occurrence: None)
  Receive Date: 20090526
  Receipt Date: 20090526
  Transmission Date: 20091009
  Serious: Yes (Other)
  Sender: FDA-Public Use
  Company Number: None

PATIENT
  Age: 40 Year
  Sex: Female
  Weight: 67.586 kg

DRUGS (3)
  1. LYRICA [Suspect]
     Indication: ADIPOSIS DOLOROSA
     Dosage: 150MG 2/DAY PO
     Route: 048
     Dates: start: 20090301, end: 20090523
  2. LYRICA [Suspect]
     Indication: FIBROMYALGIA
     Dosage: 150MG 2/DAY PO
     Route: 048
     Dates: start: 20090301, end: 20090523
  3. ROXICET [Concomitant]

REACTIONS (10)
  - AMNESIA [None]
  - ANGER [None]
  - COGNITIVE DISORDER [None]
  - CONFUSIONAL STATE [None]
  - DEMENTIA [None]
  - DEPRESSION [None]
  - MENTAL IMPAIRMENT [None]
  - MOOD SWINGS [None]
  - NERVOUS SYSTEM DISORDER [None]
  - PARANOIA [None]
